FAERS Safety Report 8064153-9 (Version None)
Quarter: 2012Q1

REPORT INFORMATION
  Report Type: 
  Country: None (occurrence: None)
  Receive Date: 20120123
  Receipt Date: 20120118
  Transmission Date: 20120608
  Serious: Yes (Life-Threatening, Hospitalization)
  Sender: FDA-Public Use
  Company Number: CH-GLAXOSMITHKLINE-B0776212A

PATIENT
  Age: 62 Year
  Sex: Female
  Weight: 78 kg

DRUGS (8)
  1. CARBOPLATIN [Suspect]
     Indication: OVARIAN CANCER
     Dosage: 400MG PER DAY
     Route: 042
     Dates: start: 20111228, end: 20111228
  2. PHENOBARBITAL TAB [Concomitant]
     Dosage: 100MG PER DAY
     Route: 048
  3. TEGRETOL-XR [Concomitant]
     Dosage: 400MG THREE TIMES PER DAY
     Route: 048
  4. DEXAMETHASONE TAB [Suspect]
     Indication: NAUSEA
     Dosage: 20MG PER DAY
     Route: 042
     Dates: start: 20111228, end: 20111228
  5. LAMICTAL [Concomitant]
     Dosage: 50MG SIX TIMES PER DAY
     Route: 048
  6. ONDANSETRON HCL [Suspect]
     Indication: NAUSEA
     Dosage: 8MG PER DAY
     Route: 042
     Dates: start: 20111228, end: 20111228
  7. AMLODIPINE [Concomitant]
     Dosage: 10MG PER DAY
     Route: 048
  8. METOPROLOL TARTRATE AND HYDROCHLOROTHIAZIDE [Concomitant]
     Dosage: 25MG TWICE PER DAY
     Route: 048

REACTIONS (5)
  - APNOEA [None]
  - MALAISE [None]
  - NAUSEA [None]
  - CIRCULATORY COLLAPSE [None]
  - TYPE I HYPERSENSITIVITY [None]
